FAERS Safety Report 8036815-0 (Version None)
Quarter: 2012Q1

REPORT INFORMATION
  Report Type: 
  Country: None (occurrence: None)
  Receive Date: 20120109
  Receipt Date: 20111226
  Transmission Date: 20120608
  Serious: Yes (Other)
  Sender: FDA-Public Use
  Company Number: TCI2011A06264

PATIENT
  Age: 79 Year
  Sex: Male

DRUGS (11)
  1. BASEN (VOGLIBOSE) [Concomitant]
  2. TANATRIL (IMIDAPRIL HYDROCHLORIDE) [Concomitant]
  3. LASIX [Concomitant]
  4. ASPIRIN [Concomitant]
  5. FRANDOL TAPE (ISOSORBIDE DINITRATE) [Concomitant]
  6. WARFARIN (WARFARIN POTASSIUM) [Concomitant]
  7. ACTOS [Suspect]
     Indication: DIABETES MELLITUS
     Dosage: 30 MG (30 MG, 3 IN 1 D), PER ORAL
     Route: 048
     Dates: start: 20080522, end: 20111119
  8. SELBEX (TEPRENONE) [Concomitant]
  9. CRESTOR [Concomitant]
  10. LEVOTHYROXINE SODIUM [Concomitant]
  11. LANSOPRAZOLE [Concomitant]

REACTIONS (2)
  - CARDIOMEGALY [None]
  - BLADDER CANCER [None]
